FAERS Safety Report 10331358 (Version 1)
Quarter: 2014Q3

REPORT INFORMATION
  Report Type: Report from Study
  Country: US (occurrence: None)
  Receive Date: 20140718
  Receipt Date: 20140718
  Transmission Date: 20150326
  Serious: Yes (Death, Other)
  Sender: FDA-Public Use
  Company Number: ADR-2014-01243

PATIENT
  Age: 66 Year
  Sex: Male

DRUGS (3)
  1. BUPIVACAINE INTRATHECAL [Suspect]
     Active Substance: BUPIVACAINE
     Indication: CANCER PAIN
  2. DILAUDID [Suspect]
     Active Substance: HYDROMORPHONE HYDROCHLORIDE
  3. BACLOFEN INTRATHECAL [Suspect]
     Active Substance: BACLOFEN
     Indication: CANCER PAIN

REACTIONS (1)
  - Sepsis [None]

NARRATIVE: CASE EVENT DATE: 20140607
